FAERS Safety Report 7652698-2 (Version None)
Quarter: 2011Q3

REPORT INFORMATION
  Report Type: 
  Country: None (occurrence: None)
  Receive Date: 20110722
  Receipt Date: 20101102
  Transmission Date: 20111222
  Serious: Yes (Hospitalization)
  Sender: FDA-Public Use
  Company Number: UTC-001829

PATIENT
  Age: 46 Year
  Sex: Female
  Weight: 64.8644 kg

DRUGS (5)
  1. COUMADIN [Suspect]
     Dosage: (2.5 MG)
  2. REMODULIN [Suspect]
     Indication: PULMONARY ARTERIAL HYPERTENSION
     Dosage: 132.48 UG/KG (0.092 UG/KG, 1 IN 1 MIN), INTRAVENOUS
     Route: 042
     Dates: start: 20061123
  3. LASIX [Suspect]
     Dosage: (20 MG)
  4. SPIRONOLACTONE [Suspect]
     Dosage: (50 MG)
  5. REVATIO [Suspect]
     Dosage: (20 MG)

REACTIONS (6)
  - LIP DISCOLOURATION [None]
  - SENSATION OF HEAVINESS [None]
  - ASCITES [None]
  - VOMITING [None]
  - DYSPNOEA [None]
  - DRUG WITHDRAWAL SYNDROME [None]
